FAERS Safety Report 8806355 (Version 3)
Quarter: 2013Q1

REPORT INFORMATION
  Report Type: Spontaneous
  Country: US (occurrence: None)
  Receive Date: 20120919
  Receipt Date: 20130213
  Transmission Date: 20140127
  Serious: Yes (Other)
  Sender: FDA-Public Use
  Company Number: AUR-APL-2012-04042

PATIENT
  Sex: Female
  Weight: 98 kg

DRUGS (13)
  1. CLOPIDOGREL [Suspect]
     Indication: ANTICOAGULANT THERAPY
  2. CLOPIDOGREL [Suspect]
     Indication: ANTICOAGULANT THERAPY
     Dosage: LOADING DOSE 75 MG 1 IN 1 D.
  3. FLUOXETINE [Concomitant]
  4. MIRTAZAPINE [Concomitant]
  5. LEVOTHYROXINE [Concomitant]
  6. AMLODIPINE [Concomitant]
  7. BISOPROLOL [Concomitant]
  8. ASPIRIN (ACETYLSALICYLIC ACID) [Concomitant]
  9. ATORVASTATIN [Concomitant]
  10. GLIMEPIRIDE [Concomitant]
  11. MESALAMINE [Concomitant]
  12. LOSARTAN/HCTZ 100/25 [Concomitant]
  13. METFORMIN [Concomitant]

REACTIONS (1)
  - Thrombosis in device [None]
